FAERS Safety Report 7049390-4 (Version None)
Quarter: 2010Q4

REPORT INFORMATION
  Report Type: 
  Country: None (occurrence: None)
  Receive Date: 20101018
  Receipt Date: 20101005
  Transmission Date: 20110411
  Serious: Yes (Death, Hospitalization)
  Sender: FDA-Public Use
  Company Number: FR-ACTELION-A-CH2010-40414

PATIENT
  Sex: Male

DRUGS (5)
  1. TRACLEER [Suspect]
     Indication: PULMONARY ARTERIAL HYPERTENSION
     Dosage: 62.5 MG, BID
     Route: 048
     Dates: start: 20080526
  2. CLARITHROMYCIN [Suspect]
     Indication: HELICOBACTER INFECTION
  3. REVATIO [Suspect]
     Indication: PULMONARY HYPERTENSION
     Dosage: 20 MG, TID
     Dates: start: 20080530
  4. NEXIUM [Concomitant]
     Indication: DUODENAL ULCER
     Dosage: 40 MG, OD
  5. AMOXICILLIN [Concomitant]

REACTIONS (18)
  - ALANINE AMINOTRANSFERASE INCREASED [None]
  - ASCITES [None]
  - ASPARTATE AMINOTRANSFERASE INCREASED [None]
  - BILIRUBIN CONJUGATED INCREASED [None]
  - CYTOLYTIC HEPATITIS [None]
  - DIARRHOEA [None]
  - DRUG INTERACTION [None]
  - DUODENAL ULCER [None]
  - GAMMA-GLUTAMYLTRANSFERASE INCREASED [None]
  - HELICOBACTER INFECTION [None]
  - HEPATIC FAILURE [None]
  - HEPATITIS TOXIC [None]
  - JAUNDICE [None]
  - LYMPHADENOPATHY [None]
  - OEDEMA PERIPHERAL [None]
  - ORAL CANDIDIASIS [None]
  - PROTHROMBIN TIME SHORTENED [None]
  - PYREXIA [None]
